FAERS Safety Report 10052311 (Version 1)
Quarter: 2014Q2

REPORT INFORMATION
  Report Type: Spontaneous
  Country: US (occurrence: None)
  Receive Date: 20140401
  Receipt Date: 20140401
  Transmission Date: 20141212
  Serious: Yes (Disabling)
  Sender: FDA-Public Use
  Company Number: None

PATIENT
  Age: 68 Year
  Sex: Male
  Weight: 122.47 kg

DRUGS (1)
  1. LEVEMIR [Suspect]
     Dosage: 42 UNITS X 2?STOMACH, ARM, THIGH

REACTIONS (3)
  - Injection site urticaria [None]
  - Drug ineffective [None]
  - Blood glucose increased [None]
